FAERS Safety Report 5499203-7 (Version None)
Quarter: 2007Q4

REPORT INFORMATION
  Report Type: 
  Country: None (occurrence: None)
  Receive Date: 20071026
  Receipt Date: 20071022
  Transmission Date: 20080405
  Serious: Yes (Other)
  Sender: FDA-Public Use
  Company Number: US-ASTRAZENECA-2006UW20302

PATIENT
  Age: 31 Year
  Sex: Male
  Weight: 137 kg

DRUGS (5)
  1. SEROQUEL [Suspect]
     Indication: OBSESSIVE-COMPULSIVE DISORDER
     Dosage: 100 MG IN AM; 450 MG AT NIGHT
     Route: 048
     Dates: start: 20050101
  2. SEROQUEL [Suspect]
     Indication: SCHIZOAFFECTIVE DISORDER
     Dosage: 100 MG IN AM; 450 MG AT NIGHT
     Route: 048
     Dates: start: 20050101
  3. COGENTIN [Concomitant]
     Route: 048
     Dates: end: 20070901
  4. ZOLOFT [Concomitant]
     Route: 048
     Dates: start: 20070901
  5. ABILIFY [Concomitant]
     Route: 048

REACTIONS (8)
  - ASTHENIA [None]
  - DIZZINESS [None]
  - DYSKINESIA [None]
  - HYPERTENSION [None]
  - MUSCLE RIGIDITY [None]
  - TACHYCARDIA [None]
  - TONGUE OEDEMA [None]
  - TRAUMATIC BRAIN INJURY [None]
